FAERS Safety Report 6303873-0 (Version None)
Quarter: 2009Q3

REPORT INFORMATION
  Report Type: 
  Country: None (occurrence: None)
  Receive Date: 20090807
  Receipt Date: 20090807
  Transmission Date: 20100115
  Serious: No
  Sender: FDA-Public Use
  Company Number: None

PATIENT
  Age: 61 Year
  Sex: Male
  Weight: 124.74 kg

DRUGS (1)
  1. LOVASTATIN [Suspect]
     Indication: HYPERLIPIDAEMIA
     Dosage: 60 MG EVERY DAY PO
     Route: 048
     Dates: start: 20080711, end: 20090803

REACTIONS (2)
  - MYALGIA [None]
  - NO REACTION ON PREVIOUS EXPOSURE TO DRUG [None]
